FAERS Safety Report 4915179-2 (Version None)
Quarter: 2006Q1

REPORT INFORMATION
  Report Type: 
  Country: None (occurrence: None)
  Receive Date: 20060216
  Receipt Date: 20060216
  Transmission Date: 20060701
  Serious: Yes (Hospitalization)
  Sender: FDA-Public Use
  Company Number: None

PATIENT
  Sex: Male
  Weight: 73.4827 kg

DRUGS (6)
  1. HYDROCODONE [Suspect]
     Indication: POSTOPERATIVE ANALGESIA
     Dosage: PO PRIOR TO ADMISSION
     Route: 048
  2. HYDROCHLOROTHIAZIDE [Concomitant]
  3. DOXAZOSIN [Concomitant]
  4. DETROL [Concomitant]
  5. CEPHALEXIN [Concomitant]
  6. FOSINOPRIL SODIUM [Concomitant]

REACTIONS (2)
  - CONSTIPATION [None]
  - DRUG INEFFECTIVE [None]
